FAERS Safety Report 7821724-X (Version None)
Quarter: 2011Q4

REPORT INFORMATION
  Report Type: 
  Country: None (occurrence: None)
  Receive Date: 20111018
  Receipt Date: 20110202
  Transmission Date: 20120403
  Serious: No
  Sender: FDA-Public Use
  Company Number: US-ASTRAZENECA-2011SE05937

PATIENT
  Age: 51 Year
  Sex: Male

DRUGS (9)
  1. JANUMET [Concomitant]
  2. KLONOPIN [Concomitant]
  3. ALLOPURINOL [Concomitant]
  4. SYMBICORT [Suspect]
     Indication: ASTHMA
     Dosage: 160/4.5 MCG WEEKLY
     Route: 055
  5. BACLAFEN [Concomitant]
  6. TOPAMAX [Concomitant]
  7. AMITIZA [Concomitant]
  8. GLIMEPIRIDE [Concomitant]
  9. CELEBREX [Concomitant]

REACTIONS (3)
  - INAPPROPRIATE SCHEDULE OF DRUG ADMINISTRATION [None]
  - DIARRHOEA [None]
  - ABDOMINAL DISCOMFORT [None]
